FAERS Safety Report 4578864-0 (Version None)
Quarter: 2005Q1

REPORT INFORMATION
  Report Type: 
  Country: None (occurrence: None)
  Receive Date: 20050211
  Receipt Date: 20050201
  Transmission Date: 20050727
  Serious: Yes (Hospitalization)
  Sender: FDA-Public Use
  Company Number: AU-AMGEN-US110900

PATIENT
  Sex: Female
  Weight: 63 kg

DRUGS (11)
  1. NEUPOGEN [Suspect]
     Indication: CHEMOTHERAPY
     Route: 058
     Dates: start: 20050115, end: 20050126
  2. CYCLOPHOSPHAMIDE [Concomitant]
     Dates: start: 20050111, end: 20050113
  3. VINCRISTINE [Concomitant]
     Dates: start: 20050113, end: 20050121
  4. DOXORUBICIN HCL [Concomitant]
     Dates: start: 20050113, end: 20050113
  5. RANITIDINE [Concomitant]
     Dates: start: 20050114
  6. VALACYCLOVIR HCL [Concomitant]
     Dates: start: 20050114
  7. FLUCONAZOLE [Concomitant]
     Dates: start: 20050114
  8. METOCLOPRAMIDE [Concomitant]
     Dates: start: 20050114
  9. COTRIM [Concomitant]
     Dates: start: 20050114
  10. DOLASETRON [Concomitant]
     Dates: start: 20050114
  11. NORETHISTERONE [Concomitant]
     Dates: start: 20050115

REACTIONS (2)
  - BACK PAIN [None]
  - MUSCLE SPASMS [None]
